FAERS Safety Report 6187140-4 (Version None)
Quarter: 2009Q2

REPORT INFORMATION
  Report Type: 
  Country: None (occurrence: None)
  Receive Date: 20090508
  Receipt Date: 20090505
  Transmission Date: 20091009
  Serious: Yes (Life-Threatening, Disabling)
  Sender: FDA-Public Use
  Company Number: SP02372

PATIENT
  Age: 52 Year
  Sex: Male

DRUGS (2)
  1. MOVIPREP [Suspect]
     Indication: COLONOSCOPY
     Dosage: 1 LIT, ORAL
     Route: 048
     Dates: start: 20090504, end: 20090504
  2. ADVAIR HFA [Concomitant]

REACTIONS (2)
  - ANAPHYLACTIC REACTION [None]
  - ARTHRALGIA [None]
